FAERS Safety Report 22098908 (Version 1)
Quarter: 2023Q1

REPORT INFORMATION
  Report Type: Spontaneous
  Country: US (occurrence: US)
  Receive Date: 20230315
  Receipt Date: 20230315
  Transmission Date: 20230418
  Serious: Yes (Hospitalization, Other)
  Sender: FDA-Public Use
  Company Number: US-002147023-NVSC2023US054388

PATIENT
  Age: 21 Year
  Sex: Male

DRUGS (1)
  1. BUPROPION [Suspect]
     Active Substance: BUPROPION
     Indication: Major depression
     Dosage: UNK
     Route: 065

REACTIONS (5)
  - Cardiogenic shock [Recovering/Resolving]
  - Unresponsive to stimuli [Unknown]
  - Seizure [Unknown]
  - Arrhythmia [Unknown]
  - Overdose [Unknown]
